FAERS Safety Report 21190774 (Version 4)
Quarter: 2022Q4

REPORT INFORMATION
  Report Type: Report from Study
  Country: TW (occurrence: TW)
  Receive Date: 20220809
  Receipt Date: 20221213
  Transmission Date: 20230112
  Serious: Yes (Hospitalization)
  Sender: FDA-Public Use
  Company Number: TW-JNJFOC-20220809481

PATIENT
  Age: 46 Year
  Sex: Female
  Weight: 53 kg

DRUGS (1)
  1. ESKETAMINE [Suspect]
     Active Substance: ESKETAMINE
     Indication: Major depression
     Dosage: WITH MOST RECENT DOSE ADMINISTERED ON 11-JUL-2022.
     Dates: start: 20170628

REACTIONS (1)
  - Ovarian germ cell teratoma [Recovered/Resolved]

NARRATIVE: CASE EVENT DATE: 20210901
